FAERS Safety Report 20138612 (Version 1)
Quarter: 2021Q4

REPORT INFORMATION
  Report Type: Spontaneous
  Country: GB (occurrence: GB)
  Receive Date: 20211202
  Receipt Date: 20211202
  Transmission Date: 20220303
  Serious: Yes (Other)
  Sender: FDA-Public Use
  Company Number: GB-ABBVIE-21K-167-4174542-00

PATIENT
  Age: 67 Year
  Sex: Male

DRUGS (3)
  1. AZACITIDINE [Suspect]
     Active Substance: AZACITIDINE
     Indication: Acute myeloid leukaemia
     Route: 065
  2. VENETOCLAX [Suspect]
     Active Substance: VENETOCLAX
     Indication: Acute myeloid leukaemia
     Route: 048
  3. POSACONAZOLE [Concomitant]
     Active Substance: POSACONAZOLE
     Indication: Acute myeloid leukaemia

REACTIONS (3)
  - Cytopenia [Recovered/Resolved]
  - Neutropenia [Recovered/Resolved]
  - Product use in unapproved indication [Unknown]
